FAERS Safety Report 12655082 (Version 1)
Quarter: 2016Q3

REPORT INFORMATION
  Report Type: Spontaneous
  Country: CN (occurrence: CN)
  Receive Date: 20160816
  Receipt Date: 20160816
  Transmission Date: 20161109
  Serious: Yes (Life-Threatening, Hospitalization, Disabling, Other)
  Sender: FDA-Public Use
  Company Number: CN-PFIZER INC-2016384020

PATIENT
  Age: 80 Year
  Sex: Male
  Weight: 200 kg

DRUGS (2)
  1. SULPERAZON [Suspect]
     Active Substance: CEFOPERAZONE SODIUM\SULBACTAM SODIUM
     Indication: INFECTION
     Dosage: 3 G, 3X/DAY
     Route: 041
     Dates: start: 20160531, end: 20160607
  2. DIFLUCAN [Suspect]
     Active Substance: FLUCONAZOLE
     Indication: FUNGAL INFECTION
     Dosage: 1 G, DAILY
     Route: 041
     Dates: start: 20160530, end: 20160607

REACTIONS (6)
  - Chest discomfort [Recovered/Resolved with Sequelae]
  - Tachypnoea [Recovered/Resolved with Sequelae]
  - Tachycardia [Recovered/Resolved with Sequelae]
  - Haemoptysis [Recovered/Resolved with Sequelae]
  - Blood pressure increased [Recovered/Resolved with Sequelae]
  - Coagulopathy [Recovered/Resolved with Sequelae]

NARRATIVE: CASE EVENT DATE: 20160606
